FAERS Safety Report 15908236 (Version 2)
Quarter: 2019Q2

REPORT INFORMATION
  Report Type: Spontaneous
  Country: US (occurrence: US)
  Receive Date: 20190204
  Receipt Date: 20190402
  Transmission Date: 20190711
  Serious: No
  Sender: FDA-Public Use
  Company Number: US-BAUSCH-BL-2019-002532

PATIENT
  Age: 73 Year
  Sex: Female
  Weight: 66.74 kg

DRUGS (1)
  1. LUMIFY [Suspect]
     Active Substance: BRIMONIDINE TARTRATE
     Indication: OCULAR HYPERAEMIA
     Dosage: USED THE PRODUCT FOR ABOUT A MONTH AFTER WAKING UP IN THE MORNING
     Route: 047
     Dates: start: 201812, end: 20190122

REACTIONS (2)
  - Eyelid pain [Recovered/Resolved]
  - Product container issue [Unknown]

NARRATIVE: CASE EVENT DATE: 201812
